FAERS Safety Report 7413163-0 (Version None)
Quarter: 2011Q2

REPORT INFORMATION
  Report Type: 
  Country: None (occurrence: None)
  Receive Date: 20110413
  Receipt Date: 20110404
  Transmission Date: 20111010
  Serious: Yes (Other)
  Sender: FDA-Public Use
  Company Number: US-JNJFOC-20110207011

PATIENT
  Age: 50 Year
  Sex: Male

DRUGS (7)
  1. BENADRYL [Suspect]
     Indication: PRODUCT USED FOR UNKNOWN INDICATION
     Dosage: TWENTY TABS OF 25MG
     Route: 048
  2. FLUPHENAZINE [Concomitant]
  3. FLUPHENAZINE HCL [Concomitant]
  4. BENADRYL [Suspect]
     Route: 048
  5. LITHOBID [Concomitant]
  6. CARBATROL [Concomitant]
  7. BENZTROPINE [Concomitant]

REACTIONS (2)
  - DRUG ABUSE [None]
  - DEPENDENCE [None]
